FAERS Safety Report 23162072 (Version 1)
Quarter: 2023Q4

REPORT INFORMATION
  Report Type: Spontaneous
  Country: US (occurrence: US)
  Receive Date: 20231109
  Receipt Date: 20231109
  Transmission Date: 20240109
  Serious: No
  Sender: FDA-Public Use
  Company Number: US-SANOFI-01821572

PATIENT
  Sex: Male

DRUGS (1)
  1. DUPIXENT [Suspect]
     Active Substance: DUPILUMAB
     Indication: Asthma
     Dosage: UNK

REACTIONS (6)
  - Hyperhidrosis [Unknown]
  - Dizziness [Unknown]
  - Fatigue [Unknown]
  - Hypersensitivity [Unknown]
  - Flushing [Unknown]
  - Inappropriate schedule of product administration [Unknown]
